FAERS Safety Report 13710859 (Version 1)
Quarter: 2017Q3

REPORT INFORMATION
  Report Type: Spontaneous
  Country: SG (occurrence: US)
  Receive Date: 20170701
  Receipt Date: 20170701
  Transmission Date: 20171127
  Serious: Yes (Hospitalization)
  Sender: FDA-Public Use
  Company Number: None

PATIENT
  Age: 56 Year
  Sex: Male
  Weight: 49.7 kg

DRUGS (2)
  1. 5-FLUOROURACIL (5-FU) (19893) [Suspect]
     Active Substance: FLUOROURACIL
     Dates: end: 20170624
  2. CISPLATIN. [Suspect]
     Active Substance: CISPLATIN
     Dates: end: 20170620

REACTIONS (1)
  - Upper gastrointestinal haemorrhage [None]

NARRATIVE: CASE EVENT DATE: 20170628
